FAERS Safety Report 10343368 (Version 2)
Quarter: 2015Q1

REPORT INFORMATION
  Report Type: Not Available
  Country: FR (occurrence: FR)
  Receive Date: 20140725
  Receipt Date: 20150302
  Transmission Date: 20150720
  Serious: Yes (Hospitalization)
  Sender: FDA-Public Use
  Company Number: FR-MUNDIPHARMA DS AND PHARMACOVIGILANCE-GBR-2014-0019643

PATIENT
  Age: 57 Year
  Sex: Female

DRUGS (12)
  1. LEVEMIR [Concomitant]
     Active Substance: INSULIN DETEMIR
     Dosage: UNK
  2. APIDRA [Concomitant]
     Active Substance: INSULIN GLULISINE
     Route: 058
  3. DEXAMETHASONE. [Suspect]
     Active Substance: DEXAMETHASONE
     Indication: PLASMA CELL MYELOMA
     Dosage: 40 MG, WEEKLY
     Route: 048
     Dates: start: 20130419, end: 20140329
  4. LIPANTHYL [Concomitant]
     Active Substance: FENOFIBRATE
     Dosage: 160 MG, DAILY
  5. LYRICA [Concomitant]
     Active Substance: PREGABALIN
     Dosage: 100 MG, TID
  6. REVLIMID [Suspect]
     Active Substance: LENALIDOMIDE
     Indication: PLASMA CELL MYELOMA
     Dosage: 25 MG, DAILY
     Route: 048
     Dates: start: 20130419, end: 20140329
  7. GLUCOR [Concomitant]
     Active Substance: ACARBOSE
  8. BISOPROLOL [Concomitant]
     Active Substance: BISOPROLOL
     Dosage: 5 MG, DAILY
  9. MOSCONTIN 100 MG, COMPRIME ENROBE A LIBERATION PROLONGEE [Suspect]
     Active Substance: MORPHINE SULFATE
     Indication: PAIN
     Dosage: UNK
     Route: 065
     Dates: start: 20140407
  10. MOSCONTIN 100 MG, COMPRIME ENROBE A LIBERATION PROLONGEE [Suspect]
     Active Substance: MORPHINE SULFATE
     Dosage: 100 MG, BID
     Route: 048
     Dates: start: 20130419, end: 20140329
  11. LEVEMIR [Concomitant]
     Active Substance: INSULIN DETEMIR
     Dosage: 30 UNIT, DAILY
     Route: 048
  12. AMAREL [Concomitant]
     Active Substance: GLIMEPIRIDE
     Route: 048

REACTIONS (5)
  - Thrombocytopenia [Recovered/Resolved]
  - Hepatitis [Recovered/Resolved]
  - Hypothyroidism [Recovered/Resolved]
  - Acute kidney injury [Recovered/Resolved]
  - Leukopenia [Recovered/Resolved]

NARRATIVE: CASE EVENT DATE: 20140329
